FAERS Safety Report 6962531-X (Version None)
Quarter: 2010Q3

REPORT INFORMATION
  Report Type: 
  Country: None (occurrence: None)
  Receive Date: 20100902
  Receipt Date: 20100824
  Transmission Date: 20110219
  Serious: Yes (Other)
  Sender: FDA-Public Use
  Company Number: BR-ABBOTT-10P-020-0666050-00

PATIENT
  Sex: Female
  Weight: 50 kg

DRUGS (1)
  1. DEPAKENE [Suspect]
     Indication: SYNCOPE
     Route: 048

REACTIONS (1)
  - SYNCOPE [None]
